FAERS Safety Report 9319402 (Version 1)
Quarter: 2013Q2

REPORT INFORMATION
  Report Type: Spontaneous
  Country: US (occurrence: US)
  Receive Date: 20130530
  Receipt Date: 20130530
  Transmission Date: 20140414
  Serious: No
  Sender: FDA-Public Use
  Company Number: US-TEVA-408908USA

PATIENT
  Age: 32 Year
  Sex: Female

DRUGS (5)
  1. PLAN B ONE-STEP [Suspect]
     Indication: POST COITAL CONTRACEPTION
     Dosage: 1.5 MILLIGRAM DAILY;
     Route: 048
     Dates: start: 20130518, end: 20130518
  2. CODEINE [Concomitant]
     Indication: PAIN
  3. CODEINE [Concomitant]
     Indication: SYSTEMIC LUPUS ERYTHEMATOSUS
  4. AMITRIPTYLINE [Concomitant]
     Indication: SYSTEMIC LUPUS ERYTHEMATOSUS
     Route: 048
  5. LITHIUM [Concomitant]
     Indication: AFFECTIVE DISORDER
     Dosage: 150 MILLIGRAM DAILY;

REACTIONS (1)
  - Menstruation irregular [Recovered/Resolved]
